FAERS Safety Report 9867035 (Version 1)
Quarter: 2014Q1

REPORT INFORMATION
  Report Type: Spontaneous
  Country: US (occurrence: None)
  Receive Date: 20140203
  Receipt Date: 20140203
  Transmission Date: 20141002
  Serious: Yes (Disabling)
  Sender: FDA-Public Use
  Company Number: None

PATIENT
  Age: 62 Year
  Sex: Male
  Weight: 68.04 kg

DRUGS (1)
  1. LEVOFLOXACIN [Suspect]
     Indication: BRONCHITIS
     Route: 048
     Dates: start: 20140115, end: 20140119

REACTIONS (5)
  - Hypoaesthesia [None]
  - Hypoaesthesia [None]
  - Coordination abnormal [None]
  - Muscular weakness [None]
  - Muscle disorder [None]
